FAERS Safety Report 19423198 (Version 1)
Quarter: 2021Q2

REPORT INFORMATION
  Report Type: Spontaneous
  Country: US (occurrence: US)
  Receive Date: 20210616
  Receipt Date: 20210616
  Transmission Date: 20210717
  Serious: Yes (Hospitalization)
  Sender: FDA-Public Use
  Company Number: None

PATIENT
  Age: 64 Year
  Sex: Male

DRUGS (4)
  1. PROPRANOL OL [Concomitant]
     Active Substance: PROPRANOLOL HYDROCHLORIDE
  2. METHYLPRED [Concomitant]
     Active Substance: METHYLPREDNISOLONE
  3. ENBREL [Suspect]
     Active Substance: ETANERCEPT
     Indication: PRODUCT USED FOR UNKNOWN INDICATION
     Route: 058
     Dates: start: 20210616
  4. AMOX/K CLAV [Concomitant]
     Active Substance: AMOXICILLIN\CLAVULANATE POTASSIUM

REACTIONS (3)
  - Therapy interrupted [None]
  - Fall [None]
  - Rib fracture [None]

NARRATIVE: CASE EVENT DATE: 20210615
